FAERS Safety Report 13906390 (Version 2)
Quarter: 2017Q4

REPORT INFORMATION
  Report Type: Spontaneous
  Country: JP (occurrence: JP)
  Receive Date: 20170825
  Receipt Date: 20171103
  Transmission Date: 20180320
  Serious: Yes (Death, Hospitalization, Other)
  Sender: FDA-Public Use
  Company Number: JP-PFIZER INC-2017322935

PATIENT
  Age: 62 Year
  Sex: Male
  Weight: 44 kg

DRUGS (7)
  1. OXIFAST [Concomitant]
     Active Substance: OXYCODONE
     Indication: CANCER PAIN
     Dosage: 25 ML PER HOUR
     Route: 042
     Dates: start: 20170717, end: 20170729
  2. FENTOS [Concomitant]
     Active Substance: FENTANYL
     Indication: CANCER PAIN
     Dosage: 3 MG, 1X/DAY
     Route: 062
     Dates: start: 20170728, end: 20170803
  3. RISPERDAL [Concomitant]
     Active Substance: RISPERIDONE
     Indication: ANXIETY DISORDER
     Dosage: 1 MG, 1X/DAY
     Route: 048
     Dates: start: 20170613, end: 20170802
  4. OXINORM (OXYCODONE HYDROCHLORIDE) [Concomitant]
     Active Substance: OXYCODONE HYDROCHLORIDE
     Indication: CANCER PAIN
     Dosage: 10 MG, AS NEEDED
     Route: 048
     Dates: start: 20170728, end: 20170804
  5. OXINORM (OXYCODONE HYDROCHLORIDE) [Concomitant]
     Active Substance: OXYCODONE HYDROCHLORIDE
     Dosage: 70 MG, 1X/DAY
     Route: 048
     Dates: start: 20170804, end: 20170804
  6. SUTENT [Suspect]
     Active Substance: SUNITINIB MALATE
     Indication: PANCREATIC NEUROENDOCRINE TUMOUR METASTATIC
     Dosage: 37.5 MG, 1X/DAY
     Route: 048
     Dates: start: 20170725, end: 20170803
  7. FENTOS [Concomitant]
     Active Substance: FENTANYL
     Dosage: 4 MG, 1X/DAY
     Route: 062
     Dates: start: 20170804, end: 20170806

REACTIONS (6)
  - Diarrhoea [Unknown]
  - Abdominal pain [Unknown]
  - Ileal perforation [Fatal]
  - Ischaemic enteritis [Unknown]
  - Haemoglobin decreased [Unknown]
  - Intestinal ischaemia [Unknown]

NARRATIVE: CASE EVENT DATE: 2017
